FAERS Safety Report 12914699 (Version 1)
Quarter: 2016Q4

REPORT INFORMATION
  Report Type: Spontaneous
  Country: US (occurrence: US)
  Receive Date: 20161106
  Receipt Date: 20161106
  Transmission Date: 20170207
  Serious: No
  Sender: FDA-Public Use
  Company Number: US-RELYPSA-RLY2016001977

PATIENT
  Sex: Male

DRUGS (11)
  1. CLONIDINE HCL [Concomitant]
     Active Substance: CLONIDINE HYDROCHLORIDE
  2. AMLODIPINE BESYLATE. [Concomitant]
     Active Substance: AMLODIPINE BESYLATE
  3. LACTULOSE. [Concomitant]
     Active Substance: LACTULOSE
  4. RENVELA [Concomitant]
     Active Substance: SEVELAMER CARBONATE
  5. MINOXIDIL. [Concomitant]
     Active Substance: MINOXIDIL
  6. VELTASSA [Suspect]
     Active Substance: PATIROMER
     Indication: HYPERKALAEMIA
     Dosage: 8.4 G, QD
     Route: 048
  7. HYDROCODONE/ACETAMINOPHEN [Concomitant]
     Active Substance: ACETAMINOPHEN\HYDROCODONE
  8. GLIPIZIDE. [Concomitant]
     Active Substance: GLIPIZIDE
  9. GABAPENTIN. [Concomitant]
     Active Substance: GABAPENTIN
  10. HYDRAZINE SULFATE [Concomitant]
     Active Substance: HYDRAZINE SULFATE
  11. METOPROLOL TARTRATE. [Concomitant]
     Active Substance: METOPROLOL TARTRATE

REACTIONS (1)
  - Vomiting [Unknown]
